FAERS Safety Report 4666053-0 (Version None)
Quarter: 2005Q2

REPORT INFORMATION
  Report Type: 
  Country: None (occurrence: None)
  Receive Date: 20050519
  Receipt Date: 20050516
  Transmission Date: 20051028
  Serious: Yes (Disabling)
  Sender: FDA-Public Use
  Company Number: SE-ROCHE-404795

PATIENT
  Age: 41 Year
  Sex: Male

DRUGS (4)
  1. IKTORIVIL [Suspect]
     Indication: EPILEPSY
     Route: 065
     Dates: start: 19950615
  2. SABRILEX [Suspect]
     Indication: DRUG USE FOR UNKNOWN INDICATION
     Route: 065
     Dates: start: 19950615
  3. KEPPRA [Suspect]
     Indication: DRUG USE FOR UNKNOWN INDICATION
     Route: 065
     Dates: start: 20030615
  4. STESOLID [Suspect]
     Indication: DRUG USE FOR UNKNOWN INDICATION
     Route: 065

REACTIONS (2)
  - HEMIPARESIS [None]
  - MYELITIS [None]
